FAERS Safety Report 12182659 (Version 1)
Quarter: 2016Q1

REPORT INFORMATION
  Report Type: Other
  Country: US (occurrence: US)
  Receive Date: 20160316
  Receipt Date: 20160316
  Transmission Date: 20160526
  Serious: Yes (Other)
  Sender: FDA-Public Use
  Company Number: US-SHIRE-US201603008

PATIENT
  Sex: Female

DRUGS (1)
  1. VPRIV [Suspect]
     Active Substance: VELAGLUCERASE ALFA
     Indication: GAUCHER^S DISEASE TYPE I
     Dosage: 4400 IU (11 VIALS), 1X/2WKS (BIMONTHLY)
     Route: 041
     Dates: start: 20100524

REACTIONS (3)
  - Cholelithiasis [Unknown]
  - Gallbladder polyp [Not Recovered/Not Resolved]
  - Echocardiogram abnormal [Recovered/Resolved]
